FAERS Safety Report 19214878 (Version 2)
Quarter: 2021Q3

REPORT INFORMATION
  Report Type: Report from Study
  Country: None (occurrence: US)
  Receive Date: 20210505
  Receipt Date: 20210708
  Transmission Date: 20211014
  Serious: Yes (Other)
  Sender: FDA-Public Use
  Company Number: US-ABBVIE-21K-163-3887278-00

PATIENT
  Age: 46 Year
  Sex: Female

DRUGS (4)
  1. HUMIRA [Suspect]
     Active Substance: ADALIMUMAB
     Indication: COLITIS ULCERATIVE
     Dosage: CITRATE FREE
     Route: 058
  2. METHOTREXATE. [Suspect]
     Active Substance: METHOTREXATE
     Dosage: DOSE DECREASED
     Route: 065
  3. HUMIRA [Suspect]
     Active Substance: ADALIMUMAB
     Indication: UVEITIS
  4. METHOTREXATE. [Suspect]
     Active Substance: METHOTREXATE
     Indication: PRODUCT USED FOR UNKNOWN INDICATION
     Route: 065

REACTIONS (5)
  - Muscle spasms [Recovering/Resolving]
  - Dermatitis contact [Recovered/Resolved]
  - Gastrooesophageal reflux disease [Recovering/Resolving]
  - Dermatitis contact [Recovered/Resolved]
  - Alopecia [Recovering/Resolving]

NARRATIVE: CASE EVENT DATE: 2019
